FAERS Safety Report 5751497-6 (Version None)
Quarter: 2008Q2

REPORT INFORMATION
  Report Type: 
  Country: None (occurrence: None)
  Receive Date: 20080527
  Receipt Date: 20080515
  Transmission Date: 20081010
  Serious: Yes (Other)
  Sender: FDA-Public Use
  Company Number: 2008BI012600

PATIENT
  Age: 56 Year
  Sex: Female

DRUGS (2)
  1. AVONEX [Suspect]
     Indication: MULTIPLE SCLEROSIS
     Dosage: 30 UG; QW; IM
     Route: 030
     Dates: start: 20061129
  2. IV STEROIDS [Concomitant]

REACTIONS (12)
  - ASTHENIA [None]
  - BALANCE DISORDER [None]
  - CONTUSION [None]
  - DERMATITIS CONTACT [None]
  - FALL [None]
  - FUNGAL INFECTION [None]
  - GAIT DISTURBANCE [None]
  - INFLUENZA LIKE ILLNESS [None]
  - PATHOLOGICAL GAMBLING [None]
  - PRURITUS [None]
  - PSYCHOTIC DISORDER [None]
  - SEPSIS [None]
